FAERS Safety Report 10344553 (Version 1)
Quarter: 2014Q3

REPORT INFORMATION
  Report Type: Spontaneous
  Country: AR (occurrence: AR)
  Receive Date: 20140728
  Receipt Date: 20140728
  Transmission Date: 20150326
  Serious: Yes (Other)
  Sender: FDA-Public Use
  Company Number: 2014SP000676

PATIENT
  Age: 59 Year
  Sex: Female

DRUGS (10)
  1. PROCELAC [Concomitant]
  2. CORTICOSTEROIDS [Suspect]
     Active Substance: CORTICOSTEROID NOS
     Indication: OSTEOARTHRITIS
  3. DELTISONA [Concomitant]
  4. LEVOTHYROXINE [Concomitant]
     Active Substance: LEVOTHYROXINE
  5. ALPLAX [Concomitant]
  6. PAROXETINE [Concomitant]
     Active Substance: PAROXETINE\PAROXETINE HYDROCHLORIDE
  7. ENBREL [Suspect]
     Active Substance: ETANERCEPT
     Indication: RHEUMATOID ARTHRITIS
     Dates: start: 20110729, end: 201310
  8. METHOTREXATE [Suspect]
     Active Substance: METHOTREXATE
     Indication: RHEUMATOID ARTHRITIS
  9. ENBREL [Suspect]
     Active Substance: ETANERCEPT
     Indication: RHEUMATOID ARTHRITIS
     Dates: start: 201310, end: 201401
  10. ENBREL [Suspect]
     Active Substance: ETANERCEPT
     Indication: RHEUMATOID ARTHRITIS
     Dates: start: 201401

REACTIONS (11)
  - Fall [Recovering/Resolving]
  - Osteoarthritis [Recovered/Resolved]
  - Cataract [Recovered/Resolved]
  - Swelling [Recovered/Resolved]
  - Wrist fracture [Recovering/Resolving]
  - Hepatic steatosis [Recovering/Resolving]
  - Pain [Recovered/Resolved]
  - Overweight [Recovered/Resolved]
  - Nervousness [Recovered/Resolved]
  - Tendon injury [Recovering/Resolving]
  - Visual acuity reduced [Recovering/Resolving]

NARRATIVE: CASE EVENT DATE: 2012
